FAERS Safety Report 7418056-0 (Version None)
Quarter: 2011Q2

REPORT INFORMATION
  Report Type: 
  Country: None (occurrence: None)
  Receive Date: 20110407
  Receipt Date: 20110324
  Transmission Date: 20111010
  Serious: Yes (Other)
  Sender: FDA-Public Use
  Company Number: GER/GER/11/0017821

PATIENT
  Sex: Female
  Weight: 2.97 kg

DRUGS (3)
  1. LEVOTHYROXINE SODIUM [Concomitant]
  2. FOLIO FORTE(MAXIPLEX /00992201/) [Concomitant]
  3. CITALOPRAM HYDROBROMIDE [Suspect]
     Indication: DRUG EXPOSURE DURING PREGNANCY
     Dosage: 20 MG, 1 IN 1 D, TRANSPLACENTAL
     Route: 064
     Dates: start: 20100119, end: 20101107

REACTIONS (3)
  - SMALL FOR DATES BABY [None]
  - MATERNAL DRUGS AFFECTING FOETUS [None]
  - GROWTH RETARDATION [None]
